FAERS Safety Report 11915374 (Version 1)
Quarter: 2016Q1

REPORT INFORMATION
  Report Type: Report from Study
  Country: US (occurrence: US)
  Receive Date: 20160114
  Receipt Date: 20160114
  Transmission Date: 20160526
  Serious: No
  Sender: FDA-Public Use
  Company Number: PHEH2016US001108

PATIENT
  Age: 76 Year
  Sex: Female

DRUGS (1)
  1. AFINITOR [Suspect]
     Active Substance: EVEROLIMUS
     Indication: PRODUCT USED FOR UNKNOWN INDICATION
     Route: 065
     Dates: start: 20151224

REACTIONS (4)
  - Somnolence [Unknown]
  - Fatigue [Unknown]
  - Pollakiuria [Unknown]
  - Constipation [Unknown]

NARRATIVE: CASE EVENT DATE: 20151228
